FAERS Safety Report 11045168 (Version 6)
Quarter: 2015Q4

REPORT INFORMATION
  Report Type: Spontaneous
  Country: FI (occurrence: FI)
  Receive Date: 20150417
  Receipt Date: 20151209
  Transmission Date: 20160304
  Serious: Yes (Other)
  Sender: FDA-Public Use
  Company Number: FI-AMGEN-FINSP2015006746

PATIENT
  Age: 32 Year
  Sex: Female
  Weight: 86 kg

DRUGS (4)
  1. HIPREX [Concomitant]
     Active Substance: METHENAMINE HIPPURATE
     Indication: PROPHYLAXIS
     Dosage: 1 G, 1 X 1
     Route: 048
     Dates: start: 20150319
  2. CLOMIPHENE                         /00061301/ [Concomitant]
     Dosage: UNK
  3. ZARZIO [Concomitant]
     Active Substance: FILGRASTIM
     Indication: NEUTROPENIA
     Dosage: 30 MU, ONCE WEEKLY
     Route: 058
     Dates: start: 2012
  4. NEUPOGEN [Suspect]
     Active Substance: FILGRASTIM
     Indication: NEUTROPENIA
     Dosage: 0.6 MG/1 ML, 2 TIME/WEEK
     Route: 058
     Dates: start: 200803, end: 2012

REACTIONS (3)
  - Escherichia urinary tract infection [Unknown]
  - Gestational diabetes [Recovered/Resolved]
  - Pregnancy [Recovered/Resolved]

NARRATIVE: CASE EVENT DATE: 20150211
